FAERS Safety Report 5014692-X (Version None)
Quarter: 2006Q2

REPORT INFORMATION
  Report Type: 
  Country: None (occurrence: None)
  Receive Date: 20060522
  Receipt Date: 20060516
  Transmission Date: 20061013
  Serious: Yes (Life-Threatening)
  Sender: FDA-Public Use
  Company Number: 200610069BBE

PATIENT
  Age: 15 Year
  Sex: Male
  Weight: 61 kg

DRUGS (47)
  1. KOGENATE FS [Suspect]
     Indication: FACTOR VIII DEFICIENCY
     Dosage: SEE IMAGE
     Dates: start: 20021206, end: 20021227
  2. KOGENATE FS [Suspect]
     Indication: KIDNEY RUPTURE
     Dosage: SEE IMAGE
     Dates: start: 20021206, end: 20021227
  3. KOGENATE FS [Suspect]
     Indication: FACTOR VIII DEFICIENCY
     Dosage: SEE IMAGE
     Dates: start: 20050205, end: 20060208
  4. KOGENATE FS [Suspect]
     Indication: KIDNEY RUPTURE
     Dosage: SEE IMAGE
     Dates: start: 20050205, end: 20060208
  5. KOGENATE FS [Suspect]
     Indication: FACTOR VIII DEFICIENCY
     Dosage: SEE IMAGE
     Dates: start: 20060130, end: 20060213
  6. KOGENATE FS [Suspect]
     Indication: KIDNEY RUPTURE
     Dosage: SEE IMAGE
     Dates: start: 20060130, end: 20060213
  7. KOGENATE FS [Suspect]
     Indication: FACTOR VIII DEFICIENCY
     Dosage: SEE IMAGE
     Dates: start: 20060130, end: 20060213
  8. KOGENATE FS [Suspect]
     Indication: KIDNEY RUPTURE
     Dosage: SEE IMAGE
     Dates: start: 20060130, end: 20060213
  9. KOGENATE FS [Suspect]
     Indication: FACTOR VIII DEFICIENCY
     Dosage: SEE IMAGE
     Dates: start: 20060130, end: 20060213
  10. KOGENATE FS [Suspect]
     Indication: KIDNEY RUPTURE
     Dosage: SEE IMAGE
     Dates: start: 20060130, end: 20060213
  11. KOGENATE FS [Suspect]
     Indication: FACTOR VIII DEFICIENCY
     Dosage: SEE IMAGE
     Dates: start: 20060130, end: 20060213
  12. KOGENATE FS [Suspect]
     Indication: KIDNEY RUPTURE
     Dosage: SEE IMAGE
     Dates: start: 20060130, end: 20060213
  13. KOGENATE FS [Suspect]
     Indication: FACTOR VIII DEFICIENCY
     Dosage: SEE IMAGE
     Dates: start: 20060130, end: 20060213
  14. KOGENATE FS [Suspect]
     Indication: KIDNEY RUPTURE
     Dosage: SEE IMAGE
     Dates: start: 20060130, end: 20060213
  15. KOGENATE FS [Suspect]
     Indication: FACTOR VIII DEFICIENCY
     Dosage: SEE IMAGE
     Dates: start: 20060130, end: 20060213
  16. KOGENATE FS [Suspect]
     Indication: KIDNEY RUPTURE
     Dosage: SEE IMAGE
     Dates: start: 20060130, end: 20060213
  17. KOGENATE FS [Suspect]
     Indication: FACTOR VIII DEFICIENCY
     Dosage: SEE IMAGE
     Dates: start: 20060211, end: 20060213
  18. KOGENATE FS [Suspect]
     Indication: KIDNEY RUPTURE
     Dosage: SEE IMAGE
     Dates: start: 20060211, end: 20060213
  19. KOGENATE FS [Suspect]
     Indication: FACTOR VIII DEFICIENCY
     Dosage: SEE IMAGE
     Dates: start: 20000101
  20. KOGENATE FS [Suspect]
     Indication: KIDNEY RUPTURE
     Dosage: SEE IMAGE
     Dates: start: 20000101
  21. KOGENATE FS [Suspect]
     Indication: FACTOR VIII DEFICIENCY
     Dosage: SEE IMAGE
     Dates: start: 20000601
  22. KOGENATE FS [Suspect]
     Indication: KIDNEY RUPTURE
     Dosage: SEE IMAGE
     Dates: start: 20000601
  23. KOGENATE FS [Suspect]
     Indication: FACTOR VIII DEFICIENCY
     Dosage: SEE IMAGE
     Dates: start: 20060130
  24. KOGENATE FS [Suspect]
     Indication: KIDNEY RUPTURE
     Dosage: SEE IMAGE
     Dates: start: 20060130
  25. KOGENATE FS [Suspect]
     Indication: FACTOR VIII DEFICIENCY
     Dosage: SEE IMAGE
     Dates: start: 20060131
  26. KOGENATE FS [Suspect]
     Indication: KIDNEY RUPTURE
     Dosage: SEE IMAGE
     Dates: start: 20060131
  27. KOGENATE FS [Suspect]
     Indication: FACTOR VIII DEFICIENCY
     Dosage: SEE IMAGE
     Dates: start: 20060201
  28. KOGENATE FS [Suspect]
     Indication: KIDNEY RUPTURE
     Dosage: SEE IMAGE
     Dates: start: 20060201
  29. KOGENATE FS [Suspect]
     Indication: FACTOR VIII DEFICIENCY
     Dosage: SEE IMAGE
     Dates: start: 20060202
  30. KOGENATE FS [Suspect]
     Indication: KIDNEY RUPTURE
     Dosage: SEE IMAGE
     Dates: start: 20060202
  31. KOGENATE FS [Suspect]
     Indication: FACTOR VIII DEFICIENCY
     Dosage: SEE IMAGE
     Dates: start: 20060203
  32. KOGENATE FS [Suspect]
     Indication: KIDNEY RUPTURE
     Dosage: SEE IMAGE
     Dates: start: 20060203
  33. KOGENATE FS [Suspect]
     Indication: FACTOR VIII DEFICIENCY
     Dosage: SEE IMAGE
     Dates: start: 20060204
  34. KOGENATE FS [Suspect]
     Indication: KIDNEY RUPTURE
     Dosage: SEE IMAGE
     Dates: start: 20060204
  35. KOGENATE FS [Suspect]
     Indication: FACTOR VIII DEFICIENCY
     Dosage: SEE IMAGE
     Dates: start: 20060209
  36. KOGENATE FS [Suspect]
     Indication: KIDNEY RUPTURE
     Dosage: SEE IMAGE
     Dates: start: 20060209
  37. KOGENATE FS [Suspect]
     Indication: FACTOR VIII DEFICIENCY
     Dosage: SEE IMAGE
     Dates: start: 20060210
  38. KOGENATE FS [Suspect]
     Indication: KIDNEY RUPTURE
     Dosage: SEE IMAGE
     Dates: start: 20060210
  39. KOGENATE FS [Suspect]
     Indication: RENAL INJURY
  40. KOGENATE FS [Suspect]
  41. KOGENATE FS [Suspect]
  42. KOGENATE FS [Suspect]
  43. KOGENATE FS [Suspect]
  44. BACTRIM [Concomitant]
  45. OMEPRAZOLE [Concomitant]
  46. ACETAMINOPHEN [Concomitant]
  47. MORPHINE [Concomitant]

REACTIONS (5)
  - FACTOR VIII INHIBITION [None]
  - HAEMORRHAGE [None]
  - KIDNEY RUPTURE [None]
  - PYREXIA [None]
  - RENAL INJURY [None]
